FAERS Safety Report 8338414 (Version 3)
Quarter: 2014Q1

REPORT INFORMATION
  Report Type: Spontaneous
  Country: US (occurrence: US)
  Receive Date: 20120117
  Receipt Date: 20140110
  Transmission Date: 20141002
  Serious: Yes (Other)
  Sender: FDA-Public Use
  Company Number: US-BAYER-2012-002895

PATIENT
  Age: 25 Year
  Sex: Female
  Weight: 67.57 kg

DRUGS (1)
  1. YAZ [Suspect]
     Indication: CONTRACEPTION
     Dosage: UNK
     Route: 048
     Dates: start: 2006, end: 2010

REACTIONS (4)
  - Cholecystitis chronic [None]
  - Cholelithiasis [None]
  - Injury [None]
  - Pain [None]
